FAERS Safety Report 8416186-8 (Version None)
Quarter: 2012Q2

REPORT INFORMATION
  Report Type: 
  Country: None (occurrence: None)
  Receive Date: 20120606
  Receipt Date: 20120601
  Transmission Date: 20120825
  Serious: Yes (Other)
  Sender: FDA-Public Use
  Company Number: PHEH2012US011194

PATIENT
  Sex: Male

DRUGS (4)
  1. DIOVAN HCT [Suspect]
     Indication: HYPERTENSION
     Dosage: (320/12.5 MG), ONCE A DAY
     Route: 048
  2. LIPITOR [Concomitant]
     Indication: BLOOD CHOLESTEROL ABNORMAL
     Dosage: 20 MG, ONCE A DAY
     Route: 048
  3. LIPOFENE [Concomitant]
     Indication: BLOOD CHOLESTEROL ABNORMAL
     Dosage: 150 MG, ONCE A DAY
     Route: 048
  4. KRILL OIL [Concomitant]
     Dosage: 1000 IU, ONCE A DAY
     Route: 048

REACTIONS (2)
  - TYPE 2 DIABETES MELLITUS [None]
  - BLOOD GLUCOSE FLUCTUATION [None]
